FAERS Safety Report 18057283 (Version 1)
Quarter: 2020Q3

REPORT INFORMATION
  Report Type: Spontaneous
  Country: US (occurrence: US)
  Receive Date: 20200722
  Receipt Date: 20200722
  Transmission Date: 20201103
  Serious: Yes (Other)
  Sender: FDA-Public Use
  Company Number: US-GILEAD-2020-0484715

PATIENT
  Age: 59 Year
  Sex: Male
  Weight: 115.5 kg

DRUGS (2)
  1. REMDESIVIR. [Suspect]
     Active Substance: REMDESIVIR
     Indication: COVID-19
     Dosage: 100 MG, QD
     Route: 042
     Dates: start: 20200712, end: 20200715
  2. REMDESIVIR. [Suspect]
     Active Substance: REMDESIVIR
     Indication: PNEUMONIA VIRAL
     Dosage: 200 MG, QD
     Route: 042
     Dates: start: 20200711, end: 20200711

REACTIONS (1)
  - Transaminases increased [Unknown]

NARRATIVE: CASE EVENT DATE: 20200716
